FAERS Safety Report 7677186-9 (Version None)
Quarter: 2011Q3

REPORT INFORMATION
  Report Type: 
  Country: None (occurrence: None)
  Receive Date: 20110811
  Receipt Date: 20110803
  Transmission Date: 20111222
  Serious: Yes (Hospitalization, Other)
  Sender: FDA-Public Use
  Company Number: PHHY2011BR70735

PATIENT
  Sex: Female
  Weight: 68 kg

DRUGS (8)
  1. SIMVASTATIN [Concomitant]
     Indication: BLOOD CHOLESTEROL INCREASED
     Dosage: 20 MG, UNK
     Route: 048
  2. METFORMIN HCL [Concomitant]
     Dosage: 2 DF, UNK
     Route: 048
  3. ZOLPIDEM [Concomitant]
     Dosage: 1 DF, UNK
     Route: 048
  4. PANTOPRAZOLE [Concomitant]
     Dosage: 1 DF, UNK
     Route: 048
  5. BUFFERIN [Suspect]
     Indication: CARDIAC DISORDER
     Dosage: 1 DF, QD
     Route: 048
  6. CITALOPRAM [Concomitant]
     Indication: DEPRESSION
     Dosage: 1 DF, UNK
  7. GLICLAZIDE [Concomitant]
     Indication: DIABETES MELLITUS
     Dosage: 1 DF, UNK
     Route: 048
  8. AMLODIPINE BESILATE W/VALSARTAN [Concomitant]
     Indication: HYPERTENSION
     Dosage: 1 DF, UNK
     Dates: start: 20110501

REACTIONS (4)
  - CATARACT [None]
  - ABNORMAL BEHAVIOUR [None]
  - STENT PLACEMENT [None]
  - DEMENTIA ALZHEIMER'S TYPE [None]
